FAERS Safety Report 18046061 (Version 2)
Quarter: 2021Q1

REPORT INFORMATION
  Report Type: Report from Study
  Country: IE (occurrence: IE)
  Receive Date: 20200720
  Receipt Date: 20210115
  Transmission Date: 20210419
  Serious: Yes (Hospitalization, Other)
  Sender: FDA-Public Use
  Company Number: NVSC2020IE125255

PATIENT
  Sex: Female

DRUGS (6)
  1. MEKINIST [Suspect]
     Active Substance: TRAMETINIB DIMETHYL SULFOXIDE
     Indication: CHILLS
     Dosage: 2 MG
     Route: 065
     Dates: start: 20200406
  2. TAFINLAR [Suspect]
     Active Substance: DABRAFENIB MESYLATE
     Indication: MALIGNANT MELANOMA
     Dosage: 150 MG
     Route: 065
     Dates: start: 20200403
  3. TAFINLAR [Suspect]
     Active Substance: DABRAFENIB MESYLATE
     Indication: CHILLS
     Dosage: 150 MG
     Route: 065
     Dates: start: 20200406
  4. MEKINIST [Suspect]
     Active Substance: TRAMETINIB DIMETHYL SULFOXIDE
     Indication: MALIGNANT MELANOMA
     Dosage: 2 MG
     Route: 065
     Dates: start: 20200304
  5. TAFINLAR [Suspect]
     Active Substance: DABRAFENIB MESYLATE
     Indication: DIARRHOEA
     Dosage: 150 MG
     Route: 065
     Dates: start: 20200413, end: 20200712
  6. MEKINIST [Suspect]
     Active Substance: TRAMETINIB DIMETHYL SULFOXIDE
     Indication: DIARRHOEA
     Dosage: 2 MG
     Route: 065
     Dates: start: 20200413, end: 20200712

REACTIONS (9)
  - Product use in unapproved indication [Unknown]
  - Chills [Not Recovered/Not Resolved]
  - Pain [Recovered/Resolved]
  - Blood test abnormal [Recovering/Resolving]
  - Pyrexia [Recovering/Resolving]
  - Urinary tract infection [Unknown]
  - Diarrhoea [Unknown]
  - Pyrexia [Recovered/Resolved]
  - Body temperature decreased [Not Recovered/Not Resolved]

NARRATIVE: CASE EVENT DATE: 20200504
